FAERS Safety Report 7282841-9 (Version None)
Quarter: 2011Q1

REPORT INFORMATION
  Report Type: 
  Country: None (occurrence: None)
  Receive Date: 20110209
  Receipt Date: 20110128
  Transmission Date: 20110831
  Serious: Yes (Hospitalization)
  Sender: FDA-Public Use
  Company Number: PHFR2010IE05832

PATIENT
  Sex: Female

DRUGS (9)
  1. CLOZARIL [Suspect]
     Dosage: 500MG IN MORNING
     Route: 065
     Dates: start: 20101201
  2. SYMBICORT [Concomitant]
     Indication: ASTHMA
     Route: 048
  3. CLOZARIL [Suspect]
     Dosage: UNKNOWN DOSE
     Route: 048
  4. INDERAL [Concomitant]
     Indication: TACHYCARDIA
     Dosage: 20 MG, BID
     Route: 048
  5. METHADONE HYDROCHLORIDE [Concomitant]
     Dosage: 30 MLS
     Route: 048
  6. PRIADEL [Concomitant]
     Indication: SCHIZOAFFECTIVE DISORDER
     Dosage: 1200
     Route: 048
  7. EPILIM [Concomitant]
     Indication: EPILEPSY
     Dosage: 1600 MG
     Route: 048
  8. CLOZARIL [Suspect]
     Indication: SCHIZOPHRENIA
     Dosage: 25MG MORNING, 87.5MG EVENING
     Route: 065
     Dates: start: 20101105
  9. KEMADRIN [Concomitant]
     Route: 048

REACTIONS (2)
  - SOMNOLENCE [None]
  - ACCIDENTAL OVERDOSE [None]
